FAERS Safety Report 7391329-6 (Version None)
Quarter: 2011Q2

REPORT INFORMATION
  Report Type: 
  Country: None (occurrence: None)
  Receive Date: 20110404
  Receipt Date: 20110330
  Transmission Date: 20111010
  Serious: Yes (Hospitalization, Other)
  Sender: FDA-Public Use
  Company Number: US-JNJFOC-20100404096

PATIENT
  Sex: Female

DRUGS (5)
  1. CIPROFLOXACIN [Suspect]
     Indication: PRODUCT USED FOR UNKNOWN INDICATION
     Route: 065
  2. LEVAQUIN [Suspect]
     Indication: LOWER RESPIRATORY TRACT INFECTION
     Route: 048
  3. PREDNISONE [Suspect]
     Indication: PRODUCT USED FOR UNKNOWN INDICATION
     Route: 048
  4. PULMICORT [Suspect]
     Indication: PRODUCT USED FOR UNKNOWN INDICATION
     Route: 065
  5. LEVAQUIN [Suspect]
     Indication: PNEUMONIA
     Route: 048

REACTIONS (8)
  - ROTATOR CUFF SYNDROME [None]
  - DIVERTICULITIS [None]
  - ATRIAL FIBRILLATION [None]
  - FIBROMYALGIA [None]
  - INTENTIONAL DRUG MISUSE [None]
  - TENDONITIS [None]
  - TENOSYNOVITIS [None]
  - DRUG INEFFECTIVE [None]
